FAERS Safety Report 8927907 (Version 1)
Quarter: 2012Q4

REPORT INFORMATION
  Report Type: Spontaneous
  Country: US (occurrence: None)
  Receive Date: 20121126
  Receipt Date: 20121126
  Transmission Date: 20130627
  Serious: Yes (Hospitalization)
  Sender: FDA-Public Use
  Company Number: None

PATIENT
  Sex: Female
  Weight: 61.6 kg

DRUGS (2)
  1. CARBOPLATIN [Suspect]
     Dates: end: 20121030
  2. PACLITAXEL (TAXOL) [Suspect]
     Dates: end: 20121030

REACTIONS (20)
  - Pyrexia [None]
  - Abdominal pain [None]
  - Nausea [None]
  - Incision site complication [None]
  - Mass [None]
  - Haemoglobin decreased [None]
  - Haematocrit decreased [None]
  - Platelet count decreased [None]
  - Blood potassium decreased [None]
  - Blood chloride decreased [None]
  - Blood albumin decreased [None]
  - Pleural effusion [None]
  - Wound infection staphylococcal [None]
  - Corynebacterium infection [None]
  - Subcutaneous abscess [None]
  - Abdominal wall disorder [None]
  - Pelvic venous thrombosis [None]
  - Soft tissue disorder [None]
  - Skin oedema [None]
  - Dermatitis [None]
